FAERS Safety Report 25244293 (Version 1)
Quarter: 2025Q2

REPORT INFORMATION
  Report Type: Spontaneous
  Country: FI (occurrence: FI)
  Receive Date: 20250428
  Receipt Date: 20250428
  Transmission Date: 20250716
  Serious: Yes (Other)
  Sender: JOHNSON AND JOHNSON
  Company Number: None

PATIENT
  Age: 16 Year
  Sex: Female

DRUGS (1)
  1. CONCERTA [Suspect]
     Active Substance: METHYLPHENIDATE HYDROCHLORIDE
     Indication: Attention deficit hyperactivity disorder
     Dosage: 1X1
     Route: 048
     Dates: start: 20250319, end: 20250331

REACTIONS (13)
  - Hemihypoaesthesia [Recovering/Resolving]
  - Heart rate increased [Recovering/Resolving]
  - Malaise [Recovering/Resolving]
  - Dizziness [Recovering/Resolving]
  - Chest pain [Recovering/Resolving]
  - Headache [Recovering/Resolving]
  - Hemiplegic migraine [Recovering/Resolving]
  - Pain in extremity [Recovering/Resolving]
  - Nausea [Recovering/Resolving]
  - Hypoaesthesia [Recovering/Resolving]
  - Musculoskeletal stiffness [Recovering/Resolving]
  - Weber tuning fork test abnormal [Recovering/Resolving]
  - Rinne tuning fork test abnormal [Recovering/Resolving]

NARRATIVE: CASE EVENT DATE: 20250328
